FAERS Safety Report 4957424-3 (Version None)
Quarter: 2006Q1

REPORT INFORMATION
  Report Type: 
  Country: None (occurrence: None)
  Receive Date: 20060327
  Receipt Date: 20060309
  Transmission Date: 20060701
  Serious: Yes (Death)
  Sender: FDA-Public Use
  Company Number: DSA_23376_2003

PATIENT
  Age: 25 Year
  Sex: Male

DRUGS (1)
  1. TEMESTA [Suspect]
     Dosage: DF PO
     Route: 048
     Dates: start: 20030703, end: 20030703

REACTIONS (5)
  - ACCIDENTAL EXPOSURE [None]
  - FATIGUE [None]
  - POISONING DELIBERATE [None]
  - ROAD TRAFFIC ACCIDENT [None]
  - SOMNOLENCE [None]
